FAERS Safety Report 8441462-2 (Version None)
Quarter: 2012Q2

REPORT INFORMATION
  Report Type: 
  Country: None (occurrence: None)
  Receive Date: 20120615
  Receipt Date: 20120606
  Transmission Date: 20120825
  Serious: Yes (Hospitalization, Other)
  Sender: FDA-Public Use
  Company Number: US-BAYER-2012-057328

PATIENT
  Age: 28 Year
  Sex: Female
  Weight: 75 kg

DRUGS (10)
  1. YAZ [Suspect]
     Indication: CONTRACEPTION
     Dosage: UNK
     Dates: start: 20070514, end: 20100613
  2. VALTREX [Concomitant]
     Indication: HERPES SIMPLEX
     Dosage: 500 MG, UNK
  3. YAZ [Suspect]
     Indication: ACNE
  4. YAZ [Suspect]
     Indication: PREMENSTRUAL SYNDROME
  5. ZOFRAN [Concomitant]
  6. DROSPIRENONE AND ETHINYL ESTRADIOL [Suspect]
     Indication: ACNE
  7. DROSPIRENONE AND ETHINYL ESTRADIOL [Suspect]
     Indication: PREMENSTRUAL SYNDROME
  8. VALIUM [Concomitant]
  9. YAZ [Suspect]
     Indication: POLYCYSTIC OVARIES
  10. DROSPIRENONE AND ETHINYL ESTRADIOL [Suspect]
     Indication: CONTRACEPTION
     Dosage: UNK
     Dates: start: 20100613, end: 20100706

REACTIONS (4)
  - NEURILEMMOMA [None]
  - DIZZINESS [None]
  - CEREBRAL INFARCTION [None]
  - THROMBOSIS [None]
